FAERS Safety Report 8938513 (Version 2)
Quarter: 2013Q1

REPORT INFORMATION
  Report Type: Report from Study
  Country: FR (occurrence: FR)
  Receive Date: 20121130
  Receipt Date: 20130117
  Transmission Date: 20140127
  Serious: Yes (Hospitalization)
  Sender: FDA-Public Use
  Company Number: FR-BRISTOL-MYERS SQUIBB COMPANY-17147950

PATIENT
  Age: 80 Year
  Sex: Female
  Weight: 60 kg

DRUGS (5)
  1. ORENCIA FOR INJ [Suspect]
     Indication: RHEUMATOID ARTHRITIS
     Route: 042
     Dates: start: 20120924, end: 20121009
  2. LOXEN [Concomitant]
     Indication: HYPERTENSION
     Dosage: 1 DF:ONE LOXEN 50MG TABS X 2
     Route: 048
     Dates: start: 2010
  3. LAMALINE [Concomitant]
     Indication: PAIN
     Route: 048
  4. XANAX [Concomitant]
     Indication: ANXIETY
     Route: 048
     Dates: start: 2011
  5. NOCTAMIDE [Concomitant]
     Indication: INSOMNIA
     Route: 048
     Dates: start: 2012

REACTIONS (5)
  - Dizziness [Recovered/Resolved with Sequelae]
  - Nausea [Recovered/Resolved]
  - Vomiting [Recovered/Resolved]
  - Gait disturbance [Recovered/Resolved]
  - Muscular weakness [Recovered/Resolved]
